FAERS Safety Report 15965048 (Version 2)
Quarter: 2019Q1

REPORT INFORMATION
  Report Type: Spontaneous
  Country: GB (occurrence: GB)
  Receive Date: 20190215
  Receipt Date: 20190227
  Transmission Date: 20190418
  Serious: Yes (Death, Hospitalization, Congenital Anomaly, Other)
  Sender: FDA-Public Use
  Company Number: GB-ACCORD-106639

PATIENT
  Age: 32 Year
  Sex: Female

DRUGS (4)
  1. CHLORPROMAZINE. [Suspect]
     Active Substance: CHLORPROMAZINE
     Indication: DEPRESSION
     Dosage: UNK,  INCREASED DOSE
     Route: 065
  2. SERTRALINE [Suspect]
     Active Substance: SERTRALINE HYDROCHLORIDE
     Indication: PRODUCT USED FOR UNKNOWN INDICATION
     Dosage: UNK, INCREASED DOSES
     Route: 065
  3. ISOSORBIDE. [Suspect]
     Active Substance: ISOSORBIDE
     Indication: ESSENTIAL HYPERTENSION
     Route: 065
  4. SERTRALINE [Suspect]
     Active Substance: SERTRALINE HYDROCHLORIDE
     Indication: DEPRESSION
     Route: 065

REACTIONS (5)
  - Maternal exposure during pregnancy [Unknown]
  - Oligohydramnios [Unknown]
  - Foetal death [Fatal]
  - Induced labour [Unknown]
  - Depression [Unknown]
